FAERS Safety Report 5025470-X (Version None)
Quarter: 2006Q2

REPORT INFORMATION
  Report Type: 
  Country: None (occurrence: None)
  Receive Date: 20060608
  Receipt Date: 20060524
  Transmission Date: 20061013
  Serious: Yes (Hospitalization, Other)
  Sender: FDA-Public Use
  Company Number: 2006-DE-02667GD

PATIENT
  Age: 48 Year
  Sex: Male

DRUGS (7)
  1. PREDNISONE TAB [Suspect]
     Indication: IMMUNOSUPPRESSION
     Dosage: 10 MG
  2. ANTITHYMOCYTE GLOBULIN (ANTITHYMOCYTE IMMUGLOBULIN) [Suspect]
     Indication: IMMUNOSUPPRESSION
  3. TARCOLIMUS (TACROLIMUS) [Suspect]
     Indication: IMMUNOSUPPRESSION
  4. MYCOPHENOLATE MOFETIL [Suspect]
     Indication: IMMUNOSUPPRESSION
  5. RIBAVIRIN [Suspect]
     Indication: CHORIOMENINGITIS LYMPHOCYTIC
     Dosage: SEE IMAGE
     Route: 042
  6. TRIMETHOPRIM-SULFAMETHOXAZOLE (INFECTRIN) [Concomitant]
  7. VALGANCICLOVIR HCL [Concomitant]

REACTIONS (18)
  - ABDOMINAL PAIN LOWER [None]
  - ANOREXIA [None]
  - ARRHYTHMIA [None]
  - CHORIOMENINGITIS LYMPHOCYTIC [None]
  - COAGULOPATHY [None]
  - COMPLICATIONS OF TRANSPLANTED KIDNEY [None]
  - DIARRHOEA [None]
  - DYSPNOEA [None]
  - ERYTHEMA [None]
  - HAEMATURIA [None]
  - HAEMOLYTIC ANAEMIA [None]
  - HEPATIC ENZYME INCREASED [None]
  - HYPOXIA [None]
  - INFECTION IN AN IMMUNOCOMPROMISED HOST [None]
  - MENTAL STATUS CHANGES [None]
  - PROTEINURIA [None]
  - PROTHROMBIN TIME PROLONGED [None]
  - THROMBOCYTOPENIA [None]
